FAERS Safety Report 5240980-8 (Version None)
Quarter: 2007Q1

REPORT INFORMATION
  Report Type: 
  Country: None (occurrence: None)
  Receive Date: 20070219
  Receipt Date: 20070212
  Transmission Date: 20070707
  Serious: Yes (Death, Hospitalization)
  Sender: FDA-Public Use
  Company Number: BR-GILEAD-2007-0010987

PATIENT
  Sex: Male

DRUGS (3)
  1. EMTRICITABINE/TENOFOVIR DISOPROXIL FUMARATE [Suspect]
     Indication: HIV INFECTION
     Route: 048
     Dates: start: 20060705, end: 20070125
  2. RITONAVIR [Concomitant]
     Indication: HIV INFECTION
     Route: 048
     Dates: start: 20060705, end: 20070125
  3. ATAZANAVIR [Concomitant]
     Indication: HIV INFECTION
     Route: 048
     Dates: start: 20060705, end: 20070125

REACTIONS (7)
  - ASCITES [None]
  - BACK PAIN [None]
  - CHOLANGIOLITIS [None]
  - HEPATORENAL SYNDROME [None]
  - METABOLIC ENCEPHALOPATHY [None]
  - MULTI-ORGAN FAILURE [None]
  - PYREXIA [None]
